FAERS Safety Report 11476907 (Version 2)
Quarter: 2015Q4

REPORT INFORMATION
  Report Type: Spontaneous
  Country: DO (occurrence: DO)
  Receive Date: 20150909
  Receipt Date: 20151103
  Transmission Date: 20160304
  Serious: Yes (Hospitalization)
  Sender: FDA-Public Use
  Company Number: DO-ROCHE-1630734

PATIENT
  Sex: Female

DRUGS (2)
  1. MABTHERA [Suspect]
     Active Substance: RITUXIMAB
     Indication: BURKITT^S LYMPHOMA
     Route: 065
  2. TRIMETHOPRIM SULFA [Suspect]
     Active Substance: TRIMETHOPRIM SULFATE
     Indication: PRODUCT USED FOR UNKNOWN INDICATION
     Dosage: MONDAY-WEDNESDAY-FRIDAY
     Route: 065

REACTIONS (11)
  - Dysphagia [Recovered/Resolved with Sequelae]
  - Glossopharyngeal nerve paralysis [Recovered/Resolved with Sequelae]
  - VIth nerve paralysis [Recovered/Resolved]
  - Gait disturbance [Recovered/Resolved]
  - Vomiting [Unknown]
  - VIIth nerve paralysis [Recovered/Resolved with Sequelae]
  - Nystagmus [Recovered/Resolved]
  - Diplegia [Recovered/Resolved with Sequelae]
  - Balance disorder [Recovered/Resolved]
  - Vestibular neuronitis [Recovered/Resolved with Sequelae]
  - Nausea [Unknown]
